FAERS Safety Report 11267541 (Version 2)
Quarter: 2015Q3

REPORT INFORMATION
  Report Type: Report from Study
  Country: JP (occurrence: JP)
  Receive Date: 20150713
  Receipt Date: 20150725
  Transmission Date: 20151125
  Serious: Yes (Hospitalization)
  Sender: FDA-Public Use
  Company Number: PHJP2015JP011257

PATIENT
  Age: 77 Year
  Sex: Male
  Weight: 64 kg

DRUGS (16)
  1. ACZ885 [Suspect]
     Active Substance: CANAKINUMAB
     Indication: CARDIOVASCULAR EVENT PROPHYLAXIS
     Dosage: 50 UNK, UNK
     Route: 058
     Dates: start: 20111006, end: 20120105
  2. CARVEDILOL. [Concomitant]
     Active Substance: CARVEDILOL
     Indication: HYPERTENSION
     Dosage: 1.25 MG, BID
     Route: 048
     Dates: start: 20150410
  3. ACINON                             /01340901/ [Concomitant]
     Indication: PROPHYLAXIS
     Dosage: 150 MG, BID
     Route: 048
     Dates: start: 20140822
  4. NIFEDIPINE. [Concomitant]
     Active Substance: NIFEDIPINE
     Indication: HYPERTENSION
     Dosage: 40 MG, QD
     Route: 048
     Dates: start: 20140926
  5. LYRICA [Concomitant]
     Active Substance: PREGABALIN
     Indication: LUMBAR SPINAL STENOSIS
     Dosage: 25 MG, BID
     Route: 048
     Dates: start: 20141126
  6. CRESTOR [Concomitant]
     Active Substance: ROSUVASTATIN CALCIUM
     Indication: DYSLIPIDAEMIA
     Dosage: 2.5 MG, QD
     Route: 048
     Dates: start: 20110602
  7. REBAMIPIDE [Concomitant]
     Active Substance: REBAMIPIDE
     Indication: PROPHYLAXIS
     Dosage: 100 MG, TID
     Route: 048
     Dates: start: 20120802
  8. ACZ885 [Suspect]
     Active Substance: CANAKINUMAB
     Dosage: 150 MG, UNK
     Route: 058
     Dates: start: 20121004
  9. NIFEDIPINE. [Concomitant]
     Active Substance: NIFEDIPINE
     Dosage: 20 MG, BID
     Route: 048
     Dates: start: 20150305
  10. LAC-B [Concomitant]
     Active Substance: BIFIDOBACTERIUM SPP.
     Indication: CONSTIPATION
     Dosage: 1 G, TID
     Route: 048
     Dates: start: 20131003
  11. NEUROTROPIN [Concomitant]
     Active Substance: NEUROTROPIN
     Indication: LUMBAR SPINAL STENOSIS
     Dosage: 8 IU, BID
     Route: 048
     Dates: start: 20140802
  12. BAYASPIRIN [Concomitant]
     Active Substance: ASPIRIN
     Indication: PROPHYLAXIS
     Dosage: 100 MG, QD
     Route: 048
     Dates: start: 20140814
  13. DOXAZOSIN [Concomitant]
     Active Substance: DOXAZOSIN\DOXAZOSIN MESYLATE
     Indication: HYPERTENSION
     Dosage: 1 MG, QD
     Route: 048
     Dates: start: 20150306
  14. VITAMINS NOS [Concomitant]
     Active Substance: VITAMINS
     Indication: LUMBAR SPINAL STENOSIS
     Dosage: 5 UG, BID
     Route: 048
     Dates: start: 20140624
  15. URINORM [Concomitant]
     Active Substance: BENZBROMARONE
     Indication: GOUT
     Dosage: 50 MG, QD
     Route: 048
     Dates: start: 20071121
  16. SENNOSIDE [Concomitant]
     Active Substance: SENNOSIDES
     Indication: CONSTIPATION
     Dosage: 24 MG, QD
     Route: 048
     Dates: start: 20120224

REACTIONS (1)
  - Syncope [Recovered/Resolved]

NARRATIVE: CASE EVENT DATE: 20150702
